FAERS Safety Report 20935322 (Version 4)
Quarter: 2022Q2

REPORT INFORMATION
  Report Type: Report from Study
  Country: GR (occurrence: GR)
  Receive Date: 20220609
  Receipt Date: 20220629
  Transmission Date: 20220721
  Serious: Yes (Hospitalization, Other)
  Sender: FDA-Public Use
  Company Number: GR-ABBVIE-22K-066-4423053-00

PATIENT
  Sex: Male
  Weight: 74 kg

DRUGS (2)
  1. CARBIDOPA\LEVODOPA [Suspect]
     Active Substance: CARBIDOPA\LEVODOPA
     Indication: Parkinson^s disease
     Dosage: MORNING DOSE: 10 ML; CONTINUOUS RATE: 5 ML/H; EXTRA DOSE: 1 ML
     Route: 050
     Dates: start: 20210921
  2. CARBIDOPA\LEVODOPA [Suspect]
     Active Substance: CARBIDOPA\LEVODOPA
     Dosage: MORNING DOSE: 10 ML; CONTINUOUS RATE: 5 ML/H; EXTRA DOSE: 1 ML
     Route: 050

REACTIONS (8)
  - Aspiration [Not Recovered/Not Resolved]
  - Oxygen saturation decreased [Unknown]
  - Urinary tract infection [Unknown]
  - Pneumonia aspiration [Not Recovered/Not Resolved]
  - Respiratory tract infection [Unknown]
  - Flatulence [Unknown]
  - Stoma site discharge [Unknown]
  - Stoma site irritation [Unknown]
